FAERS Safety Report 8318793-X (Version None)
Quarter: 2012Q2

REPORT INFORMATION
  Report Type: 
  Country: None (occurrence: None)
  Receive Date: 20120427
  Receipt Date: 20120420
  Transmission Date: 20120825
  Serious: Yes (Hospitalization)
  Sender: FDA-Public Use
  Company Number: IT-ASTRAZENECA-2012SE26273

PATIENT
  Age: 11799 Day
  Sex: Female

DRUGS (5)
  1. SEROQUEL [Suspect]
     Indication: PERSONALITY DISORDER
     Route: 048
     Dates: start: 20120412, end: 20120412
  2. SEROQUEL [Suspect]
     Indication: INTENTIONAL SELF-INJURY
     Route: 048
     Dates: start: 20120412, end: 20120412
  3. EFFEXOR [Suspect]
     Indication: PERSONALITY DISORDER
     Route: 048
     Dates: start: 20120412, end: 20120412
  4. EFFEXOR [Suspect]
     Indication: INTENTIONAL SELF-INJURY
     Route: 048
     Dates: start: 20120412, end: 20120412
  5. CLONAZEPAM [Suspect]
     Indication: INTENTIONAL SELF-INJURY
     Route: 048
     Dates: start: 20120412, end: 20120412

REACTIONS (5)
  - MULTIPLE DRUG OVERDOSE INTENTIONAL [None]
  - SOPOR [None]
  - AGITATION [None]
  - HYPOTENSION [None]
  - CONFUSIONAL STATE [None]
